FAERS Safety Report 18420186 (Version 5)
Quarter: 2021Q3

REPORT INFORMATION
  Report Type: Spontaneous
  Country: GB (occurrence: GB)
  Receive Date: 20201023
  Receipt Date: 20210822
  Transmission Date: 20211014
  Serious: Yes (Other)
  Sender: FDA-Public Use
  Company Number: GB-TEVA-2020-GB-1840590

PATIENT
  Age: 51 Year
  Sex: Male
  Weight: 53 kg

DRUGS (24)
  1. THIAMINE MONONITRATE [Suspect]
     Active Substance: THIAMINE MONONITRATE
     Indication: HYPOVITAMINOSIS
     Dosage: 300 MILLIGRAM DAILY;
  2. COLECALCIFEROL [Suspect]
     Active Substance: CHOLECALCIFEROL
     Indication: MINERAL SUPPLEMENTATION
     Route: 065
  3. APREPITANT. [Suspect]
     Active Substance: APREPITANT
     Dates: start: 20200826
  4. DOMPERIDONE [Suspect]
     Active Substance: DOMPERIDONE
     Dosage: 8 MILLIGRAM DAILY;
     Route: 048
     Dates: start: 20200825
  5. CALCIUM [Suspect]
     Active Substance: CALCIUM
     Indication: NUTRITIONAL SUPPLEMENTATION
  6. COLECALCIFEROL [Suspect]
     Active Substance: CHOLECALCIFEROL
     Indication: MINERAL SUPPLEMENTATION
  7. DOMPERIDONE [Suspect]
     Active Substance: DOMPERIDONE
     Indication: SUPPORTIVE CARE
     Dosage: 30 MILLIGRAM DAILY;
     Route: 048
     Dates: start: 20200825
  8. TRIBASIC CALCIUM PHOSPHATE [Suspect]
     Active Substance: TRIBASIC CALCIUM PHOSPHATE
     Indication: MINERAL SUPPLEMENTATION
     Route: 065
  9. CISPLATIN. [Suspect]
     Active Substance: CISPLATIN
     Indication: GERM CELL NEOPLASM
     Dosage: 79 MILLIGRAM DAILY; 79 MG, IN 1 LITER (NOT SPECIFIED) (79 MG)
     Route: 065
     Dates: start: 20200825
  10. APREPITANT. [Suspect]
     Active Substance: APREPITANT
     Indication: MINERAL SUPPLEMENTATION
     Dosage: D2 (80 MG)
     Route: 065
     Dates: start: 20200826
  11. ONDANSETRON [Suspect]
     Active Substance: ONDANSETRON
     Indication: SUPPORTIVE CARE
     Dosage: 16 MILLIGRAM DAILY; FOR 3 DAYS (16 MG,1 D)
     Route: 048
     Dates: start: 20200825
  12. CALCIUM [Suspect]
     Active Substance: CALCIUM
     Indication: MINERAL SUPPLEMENTATION
     Route: 065
  13. PROPYPHENAZONE [Suspect]
     Active Substance: PROPYPHENAZONE
     Indication: HYPOVITAMINOSIS
     Dosage: 300 MILLIGRAM DAILY;
     Route: 065
  14. THIAMINE HYDROCHLORIDE. [Suspect]
     Active Substance: THIAMINE HYDROCHLORIDE
     Indication: NUTRITIONAL SUPPLEMENTATION
     Route: 065
  15. NICOTINE. [Suspect]
     Active Substance: NICOTINE
     Indication: DRUG THERAPY
     Dosage: 21 MILLIGRAM DAILY;
     Route: 065
  16. APREPITANT. [Suspect]
     Active Substance: APREPITANT
     Dates: start: 20200825
  17. THIAMINE. [Suspect]
     Active Substance: THIAMINE
     Indication: HYPOVITAMINOSIS
     Dosage: 300 MILLIGRAM DAILY;
     Route: 065
  18. PHENYLBUTAZONE [Suspect]
     Active Substance: PHENYLBUTAZONE
     Indication: HYPOVITAMINOSIS
     Dosage: 300 MILLIGRAM DAILY;
     Route: 065
  19. DEXAMETHASONE. [Suspect]
     Active Substance: DEXAMETHASONE
     Indication: SUPPORTIVE CARE
     Dosage: 8 MILLIGRAM DAILY;
     Route: 048
     Dates: start: 20200825
  20. ETOPOSIDE. [Suspect]
     Active Substance: ETOPOSIDE
     Indication: GERM CELL NEOPLASM
     Dosage: 360 MILLIGRAM DAILY; IN 1 LITER 2 BAGS (360 MG)
     Route: 065
     Dates: start: 20200825, end: 20200825
  21. ETOPOSIDE. [Suspect]
     Active Substance: ETOPOSIDE
     Indication: GERM CELL NEOPLASM
     Route: 065
     Dates: start: 202007
  22. APREPITANT. [Suspect]
     Active Substance: APREPITANT
     Indication: SUPPORTIVE CARE
     Dosage: D1 (125 MG)
     Route: 065
     Dates: start: 20200825
  23. SODIUM CHLORIDE INTRAVENOUS INFUSION BP 0.9% W/V [Suspect]
     Active Substance: SODIUM CHLORIDE
     Indication: MEDICATION DILUTION
     Route: 042
     Dates: start: 20200825, end: 20200825
  24. ENSURE [Suspect]
     Active Substance: AMINO ACIDS\DEXTROSE\ELECTROLYTES NOS\SOYBEAN OIL\VITAMINS
     Indication: NUTRITIONAL SUPPLEMENTATION
     Dosage: TABLETS (1 D)
     Route: 065

REACTIONS (1)
  - Hypersensitivity [Recovered/Resolved]

NARRATIVE: CASE EVENT DATE: 20200825
